FAERS Safety Report 16734114 (Version 1)
Quarter: 2019Q3

REPORT INFORMATION
  Report Type: Spontaneous
  Country: US (occurrence: US)
  Receive Date: 20190823
  Receipt Date: 20190823
  Transmission Date: 20191005
  Serious: No
  Sender: FDA-Public Use
  Company Number: US-ALLERGAN-1910483US

PATIENT
  Sex: Female
  Weight: 99.77 kg

DRUGS (1)
  1. CELEXA [Suspect]
     Active Substance: CITALOPRAM HYDROBROMIDE
     Indication: DEPRESSION
     Dosage: 10 MG, QD
     Route: 048
     Dates: start: 2008

REACTIONS (5)
  - Contusion [Unknown]
  - Drug ineffective [Unknown]
  - Fall [Unknown]
  - Tachyphrenia [Unknown]
  - Anxiety [Unknown]
